FAERS Safety Report 7120514-3 (Version None)
Quarter: 2010Q4

REPORT INFORMATION
  Report Type: 
  Country: None (occurrence: None)
  Receive Date: 20101124
  Receipt Date: 20101117
  Transmission Date: 20110411
  Serious: Yes (Hospitalization, Other)
  Sender: FDA-Public Use
  Company Number: US-PFIZER INC-2010100200

PATIENT
  Sex: Female
  Weight: 57.596 kg

DRUGS (11)
  1. LYRICA [Suspect]
     Indication: FIBROMYALGIA
     Dosage: 450 MG EVERY MORNING AND 225 MG EVERY EVENING
     Route: 048
     Dates: start: 20090409, end: 20100501
  2. MILNACIPRAN HYDROCHLORIDE [Suspect]
     Indication: FIBROMYALGIA
     Dosage: 50 MG, 2X/DAY
     Route: 048
  3. ETODOLAC [Concomitant]
     Indication: ARTHRITIS
     Dosage: 400 MG, 3X/DAY
     Route: 048
  4. MONTELUKAST SODIUM [Concomitant]
     Indication: ASTHMA
     Dosage: 10 MG, 1X/DAY
     Route: 048
  5. HYDROCHLOROTHIAZIDE [Concomitant]
     Indication: HYPERTENSION
     Dosage: 25 MG, 1X/DAY
     Route: 048
  6. LOSARTAN [Concomitant]
     Indication: HYPERTENSION
     Dosage: 100 MG, 1X/DAY
     Route: 048
  7. FLONASE [Concomitant]
     Indication: HYPERSENSITIVITY
     Dosage: UNK
     Route: 045
  8. BENADRYL [Concomitant]
     Indication: HYPERSENSITIVITY
     Dosage: UNK
  9. CYCLOBENZAPRINE [Concomitant]
     Indication: FIBROMYALGIA
     Dosage: 10 MG, 3X/DAY, AS NEEDED
     Route: 048
  10. COZAAR [Concomitant]
     Indication: HYPERTENSION
     Dosage: UNK
     Route: 048
  11. AMOXICILLIN [Concomitant]
     Indication: SINUSITIS
     Dosage: UNK

REACTIONS (8)
  - CONFUSIONAL STATE [None]
  - DRUG INEFFECTIVE [None]
  - HEAD INJURY [None]
  - NECK INJURY [None]
  - NEUROPATHY PERIPHERAL [None]
  - SWELLING [None]
  - VISION BLURRED [None]
  - WEIGHT INCREASED [None]
